FAERS Safety Report 7598631-3 (Version None)
Quarter: 2011Q3

REPORT INFORMATION
  Report Type: 
  Country: None (occurrence: None)
  Receive Date: 20110710
  Receipt Date: 20110706
  Transmission Date: 20111222
  Serious: Yes (Other)
  Sender: FDA-Public Use
  Company Number: US-AMGEN-USASP2011034549

PATIENT
  Sex: Male

DRUGS (1)
  1. NPLATE [Suspect]
     Indication: IDIOPATHIC THROMBOCYTOPENIC PURPURA
     Dates: start: 20101206, end: 20110606

REACTIONS (3)
  - MYELODYSPLASTIC SYNDROME [None]
  - HAEMATOLOGICAL MALIGNANCY [None]
  - DRUG INEFFECTIVE [None]
